FAERS Safety Report 5945792-5 (Version None)
Quarter: 2008Q4

REPORT INFORMATION
  Report Type: 
  Country: None (occurrence: None)
  Receive Date: 20081106
  Receipt Date: 20081030
  Transmission Date: 20090506
  Serious: Yes (Hospitalization)
  Sender: FDA-Public Use
  Company Number: 2008100054

PATIENT
  Age: 73 Year
  Sex: Female
  Weight: 65.318 kg

DRUGS (2)
  1. ASTELIN [Suspect]
     Indication: NASAL CONGESTION
     Dosage: 1096 MCG (548 MCG, 2 IN 1 D), IN
     Route: 055
     Dates: start: 20080905
  2. DIOVAN [Concomitant]

REACTIONS (3)
  - DYSGEUSIA [None]
  - PNEUMONIA [None]
  - WRONG TECHNIQUE IN DRUG USAGE PROCESS [None]
